FAERS Safety Report 22685529 (Version 3)
Quarter: 2024Q3

REPORT INFORMATION
  Report Type: Report from Study
  Country: US (occurrence: US)
  Receive Date: 20230710
  Receipt Date: 20240717
  Transmission Date: 20241017
  Serious: Yes (Hospitalization, Other)
  Sender: ABBVIE
  Company Number: US-ABBVIE-5319500

PATIENT
  Sex: Female

DRUGS (6)
  1. SKYRIZI [Suspect]
     Active Substance: RISANKIZUMAB-RZAA
     Indication: Crohn^s disease
     Dosage: DOSAGE: 360 MG/ML STRENGTH: 360MG/2.4ML?WEEK 12
     Route: 058
     Dates: start: 202307, end: 202307
  2. SKYRIZI [Suspect]
     Active Substance: RISANKIZUMAB-RZAA
     Dosage: DOSAGE: 360 MG/ML
     Route: 058
  3. SKYRIZI [Suspect]
     Active Substance: RISANKIZUMAB-RZAA
     Dosage: DOSAGE: 360 MG/ML STRENGTH: 360MG/2.4ML
     Route: 058
  4. SKYRIZI [Suspect]
     Active Substance: RISANKIZUMAB-RZAA
     Indication: Crohn^s disease
     Dosage: WEEK 0
     Route: 042
     Dates: start: 202304, end: 202304
  5. SKYRIZI [Suspect]
     Active Substance: RISANKIZUMAB-RZAA
     Indication: Crohn^s disease
     Dosage: WEEK 4
     Route: 042
     Dates: start: 202305, end: 202305
  6. SKYRIZI [Suspect]
     Active Substance: RISANKIZUMAB-RZAA
     Indication: Crohn^s disease
     Dosage: WEEK 8
     Route: 042
     Dates: start: 20230609, end: 20230609

REACTIONS (15)
  - Abdominal pain [Unknown]
  - Myalgia [Recovering/Resolving]
  - Night sweats [Unknown]
  - Intestinal obstruction [Unknown]
  - Gastrointestinal stenosis [Unknown]
  - Diarrhoea [Not Recovered/Not Resolved]
  - Iron deficiency anaemia [Unknown]
  - Insomnia [Not Recovered/Not Resolved]
  - Upper-airway cough syndrome [Unknown]
  - Flatulence [Not Recovered/Not Resolved]
  - Drug ineffective [Unknown]
  - Oropharyngeal pain [Unknown]
  - Antinuclear antibody increased [Unknown]
  - Joint swelling [Recovering/Resolving]
  - Arthralgia [Not Recovered/Not Resolved]

NARRATIVE: CASE EVENT DATE: 20230101
